FAERS Safety Report 10306864 (Version 2)
Quarter: 2014Q3

REPORT INFORMATION
  Report Type: Report from Study
  Country: CA (occurrence: CA)
  Receive Date: 20140715
  Receipt Date: 20140715
  Transmission Date: 20150326
  Serious: Yes (Life-Threatening, Hospitalization, Other)
  Sender: FDA-Public Use
  Company Number: CA-ABBVIE-14P-028-1252691-00

PATIENT
  Sex: Female
  Weight: 114 kg

DRUGS (1)
  1. HUMIRA [Suspect]
     Active Substance: ADALIMUMAB
     Indication: CROHN^S DISEASE
     Route: 058
     Dates: start: 20111215, end: 201402

REACTIONS (4)
  - Aspergillus infection [Recovering/Resolving]
  - Respiratory disorder [Unknown]
  - Immunosuppression [Unknown]
  - H1N1 influenza [Recovering/Resolving]
